FAERS Safety Report 10189677 (Version 1)
Quarter: 2014Q2

REPORT INFORMATION
  Report Type: Spontaneous
  Country: US (occurrence: US)
  Receive Date: 20140522
  Receipt Date: 20140522
  Transmission Date: 20141212
  Serious: Yes (Other)
  Sender: FDA-Public Use
  Company Number: US-SANOFI-AVENTIS-2013SA090155

PATIENT
  Age: 62 Year
  Sex: Female

DRUGS (2)
  1. LANTUS SOLOSTAR [Suspect]
     Dosage: DOSE:80 UNIT(S)
     Route: 051
     Dates: start: 201212
  2. SOLOSTAR [Concomitant]
     Dates: start: 201212

REACTIONS (1)
  - Cataract [Unknown]
